FAERS Safety Report 26171503 (Version 1)
Quarter: 2025Q4

REPORT INFORMATION
  Report Type: Spontaneous
  Country: US (occurrence: None)
  Receive Date: 20251217
  Receipt Date: 20251217
  Transmission Date: 20260117
  Serious: No
  Sender: FDA-CTU
  Company Number: None

PATIENT
  Sex: Female

DRUGS (1)
  1. DEFINITY [Suspect]
     Active Substance: PERFLUTREN
     Dosage: OTHER FREQUENCY : ONCE;
     Route: 042
     Dates: start: 20251216, end: 20251216

REACTIONS (1)
  - Back pain [None]

NARRATIVE: CASE EVENT DATE: 20251216
